FAERS Safety Report 4803223-2 (Version None)
Quarter: 2005Q4

REPORT INFORMATION
  Report Type: 
  Country: None (occurrence: None)
  Receive Date: 20051013
  Receipt Date: 20020918
  Transmission Date: 20060501
  Serious: Yes (Disabling, Other)
  Sender: FDA-Public Use
  Company Number: 066-02

PATIENT
  Age: 63 Year
  Sex: Female
  Weight: 68.0396 kg

DRUGS (3)
  1. CHOLESTYRAMINE [Suspect]
     Indication: GASTROINTESTINAL DISORDER
     Dosage: 1 SCOOP PO BID
     Dates: start: 20020913, end: 20020915
  2. DILANTIN [Concomitant]
  3. PHENOBARBITAL TAB [Concomitant]

REACTIONS (4)
  - CONVULSION [None]
  - EPILEPSY [None]
  - NAUSEA [None]
  - VOMITING [None]
